FAERS Safety Report 6793530-9 (Version None)
Quarter: 2010Q2

REPORT INFORMATION
  Report Type: 
  Country: None (occurrence: None)
  Receive Date: 20100624
  Receipt Date: 20081209
  Transmission Date: 20101027
  Serious: No
  Sender: FDA-Public Use
  Company Number: US-PFIZER INC-2008152102

PATIENT
  Sex: Female

DRUGS (1)
  1. CADUET [Suspect]
     Dosage: 2.5MG/20MG

REACTIONS (5)
  - ASTHENIA [None]
  - FATIGUE [None]
  - MUSCULAR WEAKNESS [None]
  - RASH [None]
  - UNEVALUABLE EVENT [None]
